FAERS Safety Report 7375754-5 (Version None)
Quarter: 2011Q1

REPORT INFORMATION
  Report Type: 
  Country: None (occurrence: None)
  Receive Date: 20110325
  Receipt Date: 20100713
  Transmission Date: 20110831
  Serious: Yes (Other)
  Sender: FDA-Public Use
  Company Number: US-BAYER-201012718NA

PATIENT
  Sex: Female
  Weight: 69.388 kg

DRUGS (4)
  1. LEXAPRO [Concomitant]
  2. YAZ [Suspect]
     Indication: ACNE
     Dosage: AS USED DOSE: UNK
     Route: 048
     Dates: start: 20080201, end: 20080301
  3. YASMIN [Suspect]
     Indication: CONTRACEPTION
     Dosage: AS USED DOSE: UNK
     Route: 048
     Dates: start: 20050101, end: 20080101
  4. ASPIRIN [Concomitant]
     Dosage: UNK
     Dates: start: 20080318, end: 20080908

REACTIONS (4)
  - DIZZINESS [None]
  - CAROTID ARTERY OCCLUSION [None]
  - CEREBROVASCULAR ACCIDENT [None]
  - CAROTID ARTERY THROMBOSIS [None]
